FAERS Safety Report 9484028 (Version 2)
Quarter: 2013Q3

REPORT INFORMATION
  Report Type: Spontaneous
  Country: CA (occurrence: CA)
  Receive Date: 20130828
  Receipt Date: 20130828
  Transmission Date: 20140515
  Serious: Yes (Death, Hospitalization)
  Sender: FDA-Public Use
  Company Number: CA-AMGEN-KDL342838

PATIENT
  Age: 44 Year
  Sex: Female

DRUGS (9)
  1. ENBREL [Suspect]
     Indication: RHEUMATOID ARTHRITIS
     Dosage: UNK UNK, QWK
     Route: 065
     Dates: start: 20090219, end: 200904
  2. PREDNISONE [Concomitant]
  3. CALCITRIOL [Concomitant]
  4. CYCLOBENZAPRINE [Concomitant]
  5. ATORVASTATIN CALCIUM [Concomitant]
  6. FRUSAMIDE/AMILORIDE [Concomitant]
  7. ACTONEL [Concomitant]
  8. ERGOCALCIFEROL [Concomitant]
  9. CODEINE [Concomitant]

REACTIONS (17)
  - Death [Fatal]
  - Paralysis [Unknown]
  - Pain [Unknown]
  - Mood swings [Unknown]
  - Dysphagia [Unknown]
  - Contusion [Unknown]
  - Chills [Unknown]
  - Decreased appetite [Unknown]
  - Dysphonia [Unknown]
  - Hot flush [Unknown]
  - Hair texture abnormal [Unknown]
  - Pruritus [Unknown]
  - Abdominal pain [Unknown]
  - Headache [Unknown]
  - Fatigue [Unknown]
  - Nausea [Unknown]
  - Cough [Unknown]
